FAERS Safety Report 10098097 (Version 2)
Quarter: 2014Q2

REPORT INFORMATION
  Report Type: Spontaneous
  Country: JP (occurrence: JP)
  Receive Date: 20140423
  Receipt Date: 20140426
  Transmission Date: 20141212
  Serious: Yes (Other)
  Sender: FDA-Public Use
  Company Number: JP-UCBSA-118403

PATIENT
  Sex: 0
  Weight: 3.51 kg

DRUGS (6)
  1. E KEPPRA [Suspect]
     Indication: PARTIAL SEIZURES
     Route: 048
  2. PHENYTOIN [Concomitant]
     Route: 048
  3. PHENOBARBITAL [Concomitant]
  4. VITAMIN B6 [Concomitant]
  5. FOLIC ACID [Concomitant]
  6. TOPIRAMATE [Concomitant]
     Route: 048

REACTIONS (5)
  - Oxygen saturation decreased [Unknown]
  - Epilepsy [Recovering/Resolving]
  - Somnolence [Recovered/Resolved]
  - Blood count abnormal [Unknown]
  - Drug effect incomplete [Unknown]
